FAERS Safety Report 21449718 (Version 2)
Quarter: 2025Q2

REPORT INFORMATION
  Report Type: Spontaneous
  Country: FR (occurrence: FR)
  Receive Date: 20221013
  Receipt Date: 20250602
  Transmission Date: 20250716
  Serious: Yes (Other)
  Sender: AUROBINDO
  Company Number: FR-002147023-NVSC2022FR221439

PATIENT
  Age: 34 Year
  Sex: Female

DRUGS (1)
  1. IMATINIB [Suspect]
     Active Substance: IMATINIB
     Indication: Philadelphia positive chronic myeloid leukaemia
     Route: 065
     Dates: start: 20200731, end: 20200915

REACTIONS (4)
  - Hydrops foetalis [Recovering/Resolving]
  - Myopericarditis [Recovering/Resolving]
  - Oedema [Recovering/Resolving]
  - Dysmenorrhoea [Unknown]
